FAERS Safety Report 6159509-5 (Version None)
Quarter: 2009Q2

REPORT INFORMATION
  Report Type: 
  Country: None (occurrence: None)
  Receive Date: 20090420
  Receipt Date: 20081107
  Transmission Date: 20091009
  Serious: No
  Sender: FDA-Public Use
  Company Number: US-ABBOTT-08P-163-0486602-00

PATIENT
  Age: 8 Year
  Sex: Female

DRUGS (2)
  1. LUPRON DEPOT-PED [Suspect]
     Indication: PRECOCIOUS PUBERTY
  2. LUPRON DEPOT-PED [Suspect]
     Dosage: LUPRON DAILY INJECTION

REACTIONS (1)
  - ARTHRALGIA [None]
